FAERS Safety Report 5434694-9 (Version None)
Quarter: 2007Q3

REPORT INFORMATION
  Report Type: 
  Country: None (occurrence: None)
  Receive Date: 20070831
  Receipt Date: 20070803
  Transmission Date: 20080115
  Serious: No
  Sender: FDA-Public Use
  Company Number: A0667768A

PATIENT
  Age: 56 Year
  Sex: Female

DRUGS (2)
  1. ALLI [Suspect]
  2. CELEBREX [Concomitant]

REACTIONS (3)
  - DRUG INTERACTION [None]
  - PAINFUL DEFAECATION [None]
  - RASH [None]
